FAERS Safety Report 22592162 (Version 1)
Quarter: 2023Q2

REPORT INFORMATION
  Report Type: Report from Study
  Country: US (occurrence: US)
  Receive Date: 20230613
  Receipt Date: 20230613
  Transmission Date: 20230722
  Serious: Yes (Hospitalization)
  Sender: FDA-Public Use
  Company Number: US-ABBVIE-5285758

PATIENT
  Sex: Male

DRUGS (1)
  1. SKYRIZI [Suspect]
     Active Substance: RISANKIZUMAB-RZAA
     Indication: Crohn^s disease
     Dosage: FIRST ADMIN DATE: 11 MAY 2023, FREQUENCY TEXT: AT WEEK 0, WEEK 4, AND WEEK 8, THEN 360 MG INJECTI...
     Route: 042

REACTIONS (1)
  - Escherichia infection [Unknown]

NARRATIVE: CASE EVENT DATE: 20230101
